FAERS Safety Report 18137473 (Version 1)
Quarter: 2020Q3

REPORT INFORMATION
  Report Type: Spontaneous
  Country: US (occurrence: US)
  Receive Date: 20200811
  Receipt Date: 20200811
  Transmission Date: 20201103
  Serious: No
  Sender: FDA-Public Use
  Company Number: US-ELI_LILLY_AND_COMPANY-US202008004191

PATIENT
  Age: 35 Year
  Sex: Female

DRUGS (1)
  1. TALTZ [Suspect]
     Active Substance: IXEKIZUMAB
     Indication: PLANTAR FASCIITIS
     Dosage: 80 MG, UNKNOWN
     Route: 065
     Dates: start: 202004

REACTIONS (2)
  - Lip swelling [Unknown]
  - Urticaria [Unknown]
